FAERS Safety Report 15221647 (Version 1)
Quarter: 2018Q3

REPORT INFORMATION
  Report Type: Not Available
  Country: US (occurrence: US)
  Receive Date: 20180731
  Receipt Date: 20180731
  Transmission Date: 20181010
  Serious: Yes (Life-Threatening, Hospitalization, Other)
  Sender: FDA-Public Use
  Company Number: US-C B FLEET CO INC-201807-US-001619

PATIENT
  Age: 61 Year
  Sex: Male

DRUGS (1)
  1. BC (ASPIRIN\CAFFEINE) [Suspect]
     Active Substance: ASPIRIN\CAFFEINE
     Indication: PRODUCT USED FOR UNKNOWN INDICATION
     Dosage: TOOK MORE THAN RECOMMENDED DOSE
     Route: 048
     Dates: end: 2016

REACTIONS (7)
  - Colostomy [Not Recovered/Not Resolved]
  - Incorrect drug administration duration [None]
  - Gastric ulcer [Not Recovered/Not Resolved]
  - Arterial haemorrhage [Recovering/Resolving]
  - Haematemesis [Recovered/Resolved]
  - Bladder perforation [Not Recovered/Not Resolved]
  - Overdose [None]
